FAERS Safety Report 5892353-2 (Version None)
Quarter: 2008Q3

REPORT INFORMATION
  Report Type: 
  Country: None (occurrence: None)
  Receive Date: 20080922
  Receipt Date: 20080922
  Transmission Date: 20090109
  Serious: Yes (Other)
  Sender: FDA-Public Use
  Company Number: None

PATIENT
  Age: 14 Year
  Sex: Female
  Weight: 53.5 kg

DRUGS (3)
  1. HYDROCORTISONE [Suspect]
     Indication: HYPOPITUITARISM
     Dosage: 5MG TAB ONE TAB, PO Q8HR TRIPLE STRESS
     Route: 048
     Dates: start: 20080811
  2. HYDROCORTISONE [Suspect]
     Indication: HYPOPITUITARISM
     Dosage: 5MG TAB ONE TAB, PO Q8HR TRIPLE STRESS
     Route: 048
     Dates: start: 20080912
  3. . [Concomitant]

REACTIONS (3)
  - ASTHENIA [None]
  - DIZZINESS [None]
  - LOSS OF CONSCIOUSNESS [None]
